FAERS Safety Report 10244177 (Version 1)
Quarter: 2014Q1

REPORT INFORMATION
  Report Type: Spontaneous
  Country: US (occurrence: None)
  Receive Date: 20140306
  Receipt Date: 20140306
  Transmission Date: 20141002
  Serious: Yes (Other)
  Sender: FDA-Public Use
  Company Number: 163-21880-13081975

PATIENT
  Age: 77 Year
  Sex: Male

DRUGS (9)
  1. REVLIMID (LENALIDOMIDE) (25 MILLIGRAM, CAPSULES) [Suspect]
     Indication: PLASMA CELL MYELOMA
     Route: 048
     Dates: start: 201206
  2. ACYCLOVIR (ACICLOVIR) (ACICLOVIR) [Concomitant]
  3. ASPIRIN (ACETYLASLICYLIC ACID) [Concomitant]
  4. ATENOLOL (ATENOLOL) [Concomitant]
  5. AVODART (DUTASTERIDE) CAPSULES [Concomitant]
  6. BACTRIM DS (BACTRIM) [Concomitant]
  7. CADUET (CADUET) [Concomitant]
  8. DEXAMETHASONE (DEXAMETHASONE) [Concomitant]
  9. OMEPRAZOLE (OMEPRAZOLE) [Concomitant]

REACTIONS (3)
  - Neutrophil count decreased [None]
  - White blood cell count decreased [None]
  - Platelet count decreased [None]
